FAERS Safety Report 11486753 (Version 1)
Quarter: 2015Q3

REPORT INFORMATION
  Report Type: Report from Study
  Country: AR (occurrence: AR)
  Receive Date: 20150909
  Receipt Date: 20150909
  Transmission Date: 20151125
  Serious: Yes (Death)
  Sender: FDA-Public Use
  Company Number: PHHY2015AR106424

PATIENT
  Sex: Male

DRUGS (4)
  1. ONBREZ BREEZHALER [Suspect]
     Active Substance: INDACATEROL
     Indication: CHRONIC OBSTRUCTIVE PULMONARY DISEASE
  2. SEEBRI BREEZHALER [Suspect]
     Active Substance: GLYCOPYRROLATE
     Indication: CHRONIC OBSTRUCTIVE PULMONARY DISEASE
  3. ONBREZ BREEZHALER [Suspect]
     Active Substance: INDACATEROL
     Indication: DYSPNOEA
     Dosage: UNK
     Route: 065
  4. SEEBRI BREEZHALER [Suspect]
     Active Substance: GLYCOPYRROLATE
     Indication: DYSPNOEA
     Dosage: UNK
     Route: 065

REACTIONS (9)
  - Neoplasm malignant [Fatal]
  - Dyspnoea [Fatal]
  - Dysphagia [Fatal]
  - Condition aggravated [Unknown]
  - Tracheal cancer [Fatal]
  - Metastasis [Fatal]
  - Tracheal disorder [Fatal]
  - Chronic obstructive pulmonary disease [Fatal]
  - Eating disorder [Fatal]
